FAERS Safety Report 4787537-0 (Version None)
Quarter: 2005Q4

REPORT INFORMATION
  Report Type: 
  Country: None (occurrence: None)
  Receive Date: 20051004
  Receipt Date: 20050920
  Transmission Date: 20060501
  Serious: Yes (Hospitalization)
  Sender: FDA-Public Use
  Company Number: FR-GILEAD-2005-0008703

PATIENT
  Age: 49 Year
  Sex: Male

DRUGS (6)
  1. EMTRIVA [Suspect]
     Indication: HIV INFECTION
     Dates: start: 20050509
  2. VIREAD [Suspect]
     Indication: HIV INFECTION
     Route: 048
     Dates: start: 20050509, end: 20050701
  3. KALETRA [Concomitant]
     Indication: HIV INFECTION
     Dates: start: 20050509
  4. RIMIFON [Concomitant]
     Indication: PULMONARY TUBERCULOSIS
     Dates: start: 20050511
  5. PIRILENE [Concomitant]
     Indication: PULMONARY TUBERCULOSIS
     Dates: start: 20050511
  6. ANSATIPINE [Concomitant]
     Indication: PULMONARY TUBERCULOSIS
     Dates: start: 20050511

REACTIONS (5)
  - BACTERIAL TEST POSITIVE [None]
  - GLYCOSURIA [None]
  - IMMUNE RECONSTITUTION SYNDROME [None]
  - PROTEINURIA [None]
  - RENAL FAILURE ACUTE [None]
